FAERS Safety Report 16289482 (Version 1)
Quarter: 2019Q2

REPORT INFORMATION
  Report Type: Spontaneous
  Country: US (occurrence: US)
  Receive Date: 20190509
  Receipt Date: 20190509
  Transmission Date: 20190711
  Serious: No
  Sender: FDA-Public Use
  Company Number: US-GLAXOSMITHKLINE-US2019080589

PATIENT
  Age: 91 Year
  Sex: Female

DRUGS (1)
  1. ADVAIR DISKUS [Suspect]
     Active Substance: FLUTICASONE PROPIONATE\SALMETEROL XINAFOATE
     Indication: PRODUCT USED FOR UNKNOWN INDICATION
     Dosage: UNK
     Route: 055
     Dates: start: 2004

REACTIONS (7)
  - Ear pain [Recovering/Resolving]
  - Sinusitis [Recovering/Resolving]
  - Headache [Recovering/Resolving]
  - Facial nerve disorder [Recovering/Resolving]
  - Herpes zoster [Recovering/Resolving]
  - Facial pain [Recovering/Resolving]
  - Eye pain [Recovering/Resolving]

NARRATIVE: CASE EVENT DATE: 201904
